FAERS Safety Report 14021867 (Version 1)
Quarter: 2017Q3

REPORT INFORMATION
  Report Type: Spontaneous
  Country: US (occurrence: None)
  Receive Date: 20170928
  Receipt Date: 20170928
  Transmission Date: 20171128
  Serious: No
  Sender: FDA-Public Use
  Company Number: None

PATIENT
  Sex: Female

DRUGS (6)
  1. OMEPRAZOLE. [Concomitant]
     Active Substance: OMEPRAZOLE
  2. PILOCARPINE. [Concomitant]
     Active Substance: PILOCARPINE
  3. OCALIVA [Suspect]
     Active Substance: OBETICHOLIC ACID
     Indication: BILIARY CIRRHOSIS PRIMARY
     Dosage: 1 TABLET QD ORAL
     Route: 048
     Dates: start: 20161005
  4. SULINDAC. [Concomitant]
     Active Substance: SULINDAC
  5. URSO [Concomitant]
     Active Substance: URSODIOL
  6. PLAQUENIL [Concomitant]
     Active Substance: HYDROXYCHLOROQUINE SULFATE

REACTIONS (2)
  - Therapy cessation [None]
  - Therapeutic response decreased [None]
